FAERS Safety Report 7150514-9 (Version None)
Quarter: 2010Q4

REPORT INFORMATION
  Report Type: 
  Country: None (occurrence: None)
  Receive Date: 20101210
  Receipt Date: 20101110
  Transmission Date: 20110411
  Serious: No
  Sender: FDA-Public Use
  Company Number: US-BAYER-2010-002336

PATIENT
  Sex: Female
  Weight: 66 kg

DRUGS (5)
  1. ALEVE (CAPLET) [Suspect]
     Indication: PRODUCT USED FOR UNKNOWN INDICATION
     Dosage: UNK
     Dates: start: 20101110
  2. SIMVASTATIN [Concomitant]
  3. DIGOXIN [Concomitant]
  4. ANAPENIL [BENZYLPENICILLIN SODIUM,CLEMIZOLE PENICILLIN] [Concomitant]
  5. THIORIDAZINE HCL [Concomitant]

REACTIONS (1)
  - FLATULENCE [None]
